FAERS Safety Report 9354166 (Version 1)
Quarter: 2013Q2

REPORT INFORMATION
  Report Type: Spontaneous
  Country: US (occurrence: US)
  Receive Date: 20130618
  Receipt Date: 20130618
  Transmission Date: 20140414
  Serious: Yes (Hospitalization)
  Sender: FDA-Public Use
  Company Number: US-ABBOTT-13P-163-1103298-00

PATIENT
  Age: 56 Year
  Sex: Male

DRUGS (2)
  1. ANDROGEL [Suspect]
     Indication: BLOOD TESTOSTERONE DECREASED
     Dosage: 1 PACKET DAILY
     Route: 061
  2. ANDROGEL [Suspect]
     Dosage: 1 PACKET DAILY
     Route: 061
     Dates: start: 201211, end: 20130530

REACTIONS (5)
  - Joint swelling [Recovering/Resolving]
  - Scrotal swelling [Recovering/Resolving]
  - Cardiac failure congestive [Recovering/Resolving]
  - Local swelling [Recovering/Resolving]
  - Local swelling [Recovering/Resolving]
